FAERS Safety Report 17398158 (Version 1)
Quarter: 2020Q1

REPORT INFORMATION
  Report Type: Report from Study
  Country: US (occurrence: US)
  Receive Date: 20200210
  Receipt Date: 20200210
  Transmission Date: 20200409
  Serious: Yes (Other)
  Sender: FDA-Public Use
  Company Number: US-SA-2020SA027459

PATIENT

DRUGS (10)
  1. FLUDARABINE PHOSPHATE. [Suspect]
     Active Substance: FLUDARABINE PHOSPHATE
     Indication: CHRONIC GRANULOMATOUS DISEASE
  2. THIOTEPA. [Suspect]
     Active Substance: THIOTEPA
     Indication: BONE MARROW CONDITIONING REGIMEN
     Dosage: 8 MG/KG ON DAY -4
  3. FLUDARABINE PHOSPHATE. [Suspect]
     Active Substance: FLUDARABINE PHOSPHATE
     Indication: BONE MARROW CONDITIONING REGIMEN
     Dosage: UNK
  4. THIOTEPA. [Suspect]
     Active Substance: THIOTEPA
     Indication: CHRONIC GRANULOMATOUS DISEASE
  5. ALEMTUZUMAB [Suspect]
     Active Substance: ALEMTUZUMAB
     Indication: BONE MARROW CONDITIONING REGIMEN
     Dosage: TOTAL DOSE 33 MG IF {10 KG AND 48 MG IF }10 KG) FOR THREE CONSECUTIVE DAYS BETWEEN DAYS -16 AND -11
     Route: 058
  6. METHOTREXATE. [Suspect]
     Active Substance: METHOTREXATE
     Indication: PROPHYLAXIS AGAINST GRAFT VERSUS HOST DISEASE
     Dosage: 7.5 MG/M2 ON DAYS +1, +3, AND +6
  7. MELPHALAN. [Suspect]
     Active Substance: MELPHALAN
     Indication: BONE MARROW CONDITIONING REGIMEN
     Dosage: 140 MG/M2 OR 4.7 MG/KG FOR PATIENTS {10 KG ON DAY -3
  8. ALEMTUZUMAB [Suspect]
     Active Substance: ALEMTUZUMAB
     Indication: CHRONIC GRANULOMATOUS DISEASE
  9. METHYLPREDNISOLONE. [Suspect]
     Active Substance: METHYLPREDNISOLONE
     Indication: PROPHYLAXIS AGAINST GRAFT VERSUS HOST DISEASE
     Dosage: 1 MG/KG, QD DAY 0 THROUGH +28 THEN TAPERED
  10. MELPHALAN. [Suspect]
     Active Substance: MELPHALAN
     Indication: CHRONIC GRANULOMATOUS DISEASE

REACTIONS (5)
  - Off label use [Unknown]
  - Adenovirus infection [Unknown]
  - Acute graft versus host disease in intestine [Not Recovered/Not Resolved]
  - Transplant failure [Unknown]
  - Chronic graft versus host disease in intestine [Recovered/Resolved]
